FAERS Safety Report 18815620 (Version 1)
Quarter: 2021Q1

REPORT INFORMATION
  Report Type: Spontaneous
  Country: US (occurrence: US)
  Receive Date: 20210131
  Receipt Date: 20210131
  Transmission Date: 20210419
  Serious: Yes (Other)
  Sender: FDA-Public Use
  Company Number: None

PATIENT
  Age: 40 Year
  Sex: Female
  Weight: 56.7 kg

DRUGS (2)
  1. DIAZEPAM 5 MG TABLETS [Suspect]
     Active Substance: DIAZEPAM
     Indication: GENERALISED ANXIETY DISORDER
     Dosage: ?          QUANTITY:1 TABLET(S);?
     Route: 048
     Dates: start: 20210113, end: 20210126
  2. DIAZEPAM 5 MG TABLETS [Suspect]
     Active Substance: DIAZEPAM
     Indication: PANIC ATTACK
     Dosage: ?          QUANTITY:1 TABLET(S);?
     Route: 048
     Dates: start: 20210113, end: 20210126

REACTIONS (17)
  - Headache [None]
  - Stress [None]
  - Drug ineffective [None]
  - Withdrawal syndrome [None]
  - Fatigue [None]
  - Palpitations [None]
  - Middle insomnia [None]
  - Nightmare [None]
  - Exaggerated startle response [None]
  - Irritability [None]
  - Suspected product quality issue [None]
  - Myalgia [None]
  - Hyperhidrosis [None]
  - Product formulation issue [None]
  - Anxiety [None]
  - Product substitution issue [None]
  - Diarrhoea [None]

NARRATIVE: CASE EVENT DATE: 20210126
